FAERS Safety Report 7820865-0 (Version None)
Quarter: 2011Q4

REPORT INFORMATION
  Report Type: 
  Country: None (occurrence: None)
  Receive Date: 20111018
  Receipt Date: 20100903
  Transmission Date: 20120403
  Serious: No
  Sender: FDA-Public Use
  Company Number: US-ASTRAZENECA-2010SE41949

PATIENT
  Age: 72 Year
  Sex: Female

DRUGS (5)
  1. BLOOD PRESSURE MEDICATION [Concomitant]
  2. CHOLESTEROL MEDICATION [Concomitant]
  3. SYMBICORT [Suspect]
     Dosage: 160/4.5 MCG, ONE PUFF BID
     Route: 055
  4. SYMBICORT [Suspect]
     Indication: CHRONIC OBSTRUCTIVE PULMONARY DISEASE
     Dosage: 160/4.5 MCG, TWO PUFFS BID
     Route: 055
     Dates: start: 20100101
  5. SPIRIVA [Concomitant]

REACTIONS (3)
  - BACK PAIN [None]
  - FALL [None]
  - DYSPHONIA [None]
